FAERS Safety Report 19465440 (Version 1)
Quarter: 2021Q2

REPORT INFORMATION
  Report Type: Spontaneous
  Country: CA (occurrence: CA)
  Receive Date: 20210624
  Receipt Date: 20210624
  Transmission Date: 20210717
  Serious: Yes (Other)
  Sender: FDA-Public Use
  Company Number: CA-SAMSUNG BIOEPIS-SB-2021-15016

PATIENT
  Age: 56 Year
  Sex: Male

DRUGS (2)
  1. INFLIXIMAB [Suspect]
     Active Substance: INFLIXIMAB
     Indication: RHEUMATOID ARTHRITIS
     Route: 042
  2. HYDROXYCHLOROQUINE SULFATE. [Concomitant]
     Active Substance: HYDROXYCHLOROQUINE SULFATE
     Indication: PRODUCT USED FOR UNKNOWN INDICATION
     Dosage: UNKNOWN
     Route: 065

REACTIONS (14)
  - Cold sweat [Recovered/Resolved]
  - Malaise [Recovered/Resolved]
  - Blood pressure fluctuation [Recovered/Resolved]
  - Heart rate decreased [Recovered/Resolved]
  - Off label use [Recovered/Resolved]
  - Therapeutic response shortened [Recovered/Resolved]
  - Product use issue [Recovered/Resolved]
  - Hypotension [Recovered/Resolved]
  - Pallor [Recovered/Resolved]
  - Blood pressure systolic increased [Recovered/Resolved]
  - Condition aggravated [Recovered/Resolved]
  - Hepatic enzyme increased [Recovered/Resolved]
  - Intentional product use issue [Recovered/Resolved]
  - Incorrect dose administered [Recovered/Resolved]
